FAERS Safety Report 5578425-0 (Version None)
Quarter: 2007Q4

REPORT INFORMATION
  Report Type: 
  Country: None (occurrence: None)
  Receive Date: 20071231
  Receipt Date: 20071220
  Transmission Date: 20080405
  Serious: Yes (Other)
  Sender: FDA-Public Use
  Company Number: US-PFIZER INC-2007107406

PATIENT
  Sex: Female
  Weight: 75 kg

DRUGS (12)
  1. LYRICA [Suspect]
     Indication: NEUROPATHY
  2. ZOLOFT [Concomitant]
  3. NORVASC [Concomitant]
  4. COZAAR [Concomitant]
  5. ZOCOR [Concomitant]
  6. ZETIA [Concomitant]
  7. ALLOPURINOL [Concomitant]
  8. PROVIGIL [Concomitant]
  9. ACETYLSALICYLIC ACID SRT [Concomitant]
  10. LASIX [Concomitant]
  11. PREDNISONE TAB [Concomitant]
  12. OMEPRAZOLE [Concomitant]

REACTIONS (4)
  - DRY SKIN [None]
  - JOINT SWELLING [None]
  - SKIN DISCOLOURATION [None]
  - URTICARIA [None]
